FAERS Safety Report 7176680-7 (Version None)
Quarter: 2010Q4

REPORT INFORMATION
  Report Type: 
  Country: None (occurrence: None)
  Receive Date: 20101220
  Receipt Date: 20101216
  Transmission Date: 20110411
  Serious: Yes (Other)
  Sender: FDA-Public Use
  Company Number: GB-PFIZER INC-2010132406

PATIENT
  Age: 62 Year
  Sex: Female
  Weight: 70 kg

DRUGS (1)
  1. CHAMPIX [Suspect]
     Indication: SMOKING CESSATION THERAPY
     Dosage: 1 MG, 2X/DAY
     Route: 048
     Dates: start: 20100909, end: 20100920

REACTIONS (4)
  - ASTHENOPIA [None]
  - EYE PAIN [None]
  - HEADACHE [None]
  - NAUSEA [None]
